FAERS Safety Report 10751422 (Version 3)
Quarter: 2015Q1

REPORT INFORMATION
  Report Type: Spontaneous
  Country: CN (occurrence: CN)
  Receive Date: 20150130
  Receipt Date: 20150217
  Transmission Date: 20150721
  Serious: No
  Sender: FDA-Public Use
  Company Number: CN-ELI_LILLY_AND_COMPANY-CN201501008341

PATIENT
  Age: 69 Year
  Sex: Male

DRUGS (2)
  1. CHLORPHENAMINE [Concomitant]
     Active Substance: CHLORPHENIRAMINE MALEATE
     Indication: ECZEMA
     Dosage: UNK
     Route: 065
  2. CIALIS [Suspect]
     Active Substance: TADALAFIL
     Indication: ERECTILE DYSFUNCTION
     Dosage: 10 MG, ONCE EVERY THREE DAYS
     Route: 048
     Dates: start: 20150113

REACTIONS (2)
  - Vision blurred [Not Recovered/Not Resolved]
  - Wrong technique in drug usage process [Unknown]
